FAERS Safety Report 18745466 (Version 4)
Quarter: 2024Q4

REPORT INFORMATION
  Report Type: Report from Study
  Country: US (occurrence: US)
  Receive Date: 20210115
  Receipt Date: 20241104
  Transmission Date: 20250115
  Serious: Yes (Other)
  Sender: MYLAN
  Company Number: US-MYLANLABS-2020M1106827

PATIENT
  Age: 44 Year
  Sex: Female
  Weight: 81.64 kg

DRUGS (2)
  1. GLATIRAMER ACETATE [Suspect]
     Active Substance: GLATIRAMER ACETATE
     Indication: Multiple sclerosis
     Dosage: 40 MILLIGRAM, 3XW(THREE TIMES PER WEEK)
     Route: 065
     Dates: start: 20201221
  2. GLATIRAMER ACETATE [Suspect]
     Active Substance: GLATIRAMER ACETATE
     Dosage: 40 MILLIGRAM, 3XW (THREE TIMES PER WEEK)
     Route: 065

REACTIONS (3)
  - Multiple sclerosis [Unknown]
  - Wrong device used [Unknown]
  - Needle issue [Unknown]

NARRATIVE: CASE EVENT DATE: 20210619
